FAERS Safety Report 15320712 (Version 1)
Quarter: 2018Q3

REPORT INFORMATION
  Report Type: Spontaneous
  Country: US (occurrence: US)
  Receive Date: 20180821
  Receipt Date: 20180821
  Transmission Date: 20181010
  Serious: Yes (Life-Threatening, Disabling, Other)
  Sender: FDA-Public Use
  Company Number: None

PATIENT
  Age: 48 Year
  Sex: Female
  Weight: 46.35 kg

DRUGS (4)
  1. ADVIL [Concomitant]
     Active Substance: IBUPROFEN
  2. BENADRYL [Concomitant]
     Active Substance: DIPHENHYDRAMINE HYDROCHLORIDE
  3. VALSARTAN 80 MG TABLET [Suspect]
     Active Substance: VALSARTAN
     Indication: HYPERTENSION
     Dosage: ?          QUANTITY:30 TABLET(S);?
     Route: 048
     Dates: start: 20180806, end: 20180818
  4. CHILDRENS APIRIN [Concomitant]

REACTIONS (9)
  - Headache [None]
  - Abdominal distension [None]
  - Product use issue [None]
  - Constipation [None]
  - Weight decreased [None]
  - Vomiting [None]
  - Urticaria [None]
  - Tinnitus [None]
  - Hypoaesthesia [None]

NARRATIVE: CASE EVENT DATE: 20180810
